FAERS Safety Report 6484735-5 (Version None)
Quarter: 2009Q4

REPORT INFORMATION
  Report Type: 
  Country: None (occurrence: None)
  Receive Date: 20091204
  Receipt Date: 20091121
  Transmission Date: 20100525
  Serious: Yes (Hospitalization)
  Sender: FDA-Public Use
  Company Number: 8033874

PATIENT
  Age: 80 Year
  Sex: Female
  Weight: 55 kg

DRUGS (2)
  1. CDP870 [Suspect]
     Indication: RHEUMATOID ARTHRITIS
     Dosage: 400 MG /M SC
     Route: 058
     Dates: start: 20031016
  2. CDP870 [Suspect]
     Indication: RHEUMATOID ARTHRITIS
     Dosage: 400 MG /M SC
     Route: 058
     Dates: start: 20040602, end: 20080519

REACTIONS (5)
  - DIABETES MELLITUS [None]
  - PH URINE DECREASED [None]
  - PYELONEPHRITIS [None]
  - PYURIA [None]
  - RENAL COLIC [None]
